FAERS Safety Report 15517111 (Version 1)
Quarter: 2018Q4

REPORT INFORMATION
  Report Type: Spontaneous
  Country: US (occurrence: US)
  Receive Date: 20181018
  Receipt Date: 20181018
  Transmission Date: 20190205
  Serious: Yes (Other)
  Sender: FDA-Public Use
  Company Number: None

PATIENT
  Age: 73 Year
  Sex: Male
  Weight: 74.25 kg

DRUGS (10)
  1. ONFI [Concomitant]
     Active Substance: CLOBAZAM
  2. LISINOPRIL. [Concomitant]
     Active Substance: LISINOPRIL
  3. GLEOSTINE [Suspect]
     Active Substance: LOMUSTINE
     Indication: BRAIN CANCER METASTATIC
     Route: 048
     Dates: start: 20180712, end: 20181018
  4. SENNA [Concomitant]
     Active Substance: SENNA LEAF\SENNOSIDES\SENNOSIDES A AND B
  5. VIMPAT [Concomitant]
     Active Substance: LACOSAMIDE
  6. ZOFRAN [Concomitant]
     Active Substance: ONDANSETRON HYDROCHLORIDE
  7. GLEOSTINE [Suspect]
     Active Substance: LOMUSTINE
     Indication: BRAIN CANCER METASTATIC
     Route: 048
     Dates: start: 20180712, end: 20181018
  8. COLACE [Concomitant]
     Active Substance: DOCUSATE SODIUM
  9. ATROVASTATIN [Concomitant]
     Active Substance: ATORVASTATIN CALCIUM
  10. KEPPRA [Concomitant]
     Active Substance: LEVETIRACETAM

REACTIONS (2)
  - Therapy cessation [None]
  - Therapy non-responder [None]

NARRATIVE: CASE EVENT DATE: 20181018
